FAERS Safety Report 7170662-7 (Version None)
Quarter: 2010Q4

REPORT INFORMATION
  Report Type: 
  Country: None (occurrence: None)
  Receive Date: 20101217
  Receipt Date: 20101210
  Transmission Date: 20110411
  Serious: Yes (Hospitalization)
  Sender: FDA-Public Use
  Company Number: B0689181A

PATIENT
  Sex: Female

DRUGS (9)
  1. VALTREX [Suspect]
     Dosage: 6IUAX PER DAY
     Route: 048
  2. BLOPRESS [Concomitant]
     Route: 048
  3. CALBLOCK [Concomitant]
     Route: 048
  4. LIPITOR [Concomitant]
     Route: 048
  5. MYSLEE [Concomitant]
     Route: 048
  6. DEPAS [Concomitant]
     Route: 048
  7. LOXONIN [Concomitant]
     Route: 048
  8. REBAMIPIDE [Concomitant]
     Route: 048
  9. GASTER D [Concomitant]
     Route: 048

REACTIONS (1)
  - RENAL FAILURE [None]
